FAERS Safety Report 11077466 (Version 2)
Quarter: 2015Q2

REPORT INFORMATION
  Report Type: Spontaneous
  Country: US (occurrence: US)
  Receive Date: 20150430
  Receipt Date: 20150526
  Transmission Date: 20150821
  Serious: No
  Sender: FDA-Public Use
  Company Number: US-JNJFOC-20141220247

PATIENT
  Age: 49 Year
  Sex: Female

DRUGS (2)
  1. ACETAMINOPHEN/OXYCODONE [Suspect]
     Active Substance: ACETAMINOPHEN\OXYCODONE HYDROCHLORIDE
     Indication: BREAKTHROUGH PAIN
     Route: 065
  2. PREGABALIN. [Suspect]
     Active Substance: PREGABALIN
     Indication: BREAKTHROUGH PAIN
     Route: 065

REACTIONS (1)
  - Pain [Unknown]
